FAERS Safety Report 14426334 (Version 1)
Quarter: 2018Q1

REPORT INFORMATION
  Report Type: Spontaneous
  Country: US (occurrence: US)
  Receive Date: 20180123
  Receipt Date: 20180123
  Transmission Date: 20180509
  Serious: No
  Sender: FDA-Public Use
  Company Number: US-ROCHE-2004176

PATIENT
  Sex: Female

DRUGS (3)
  1. OCREVUS [Suspect]
     Active Substance: OCRELIZUMAB
     Indication: MULTIPLE SCLEROSIS RELAPSE
     Dosage: DAY 1,  DAY 14 THEN EVERY 6 MONTHS
     Route: 042
     Dates: start: 20170920
  2. BENADRYL [Concomitant]
     Active Substance: DIPHENHYDRAMINE HYDROCHLORIDE
     Indication: PREMEDICATION
     Dosage: ONE DOSE BEFORE EVERY INFUSION
     Route: 065
     Dates: start: 20170920
  3. BENADRYL [Concomitant]
     Active Substance: DIPHENHYDRAMINE HYDROCHLORIDE
     Dosage: ONE TIME DOSE AS TREATMENT
     Route: 065
     Dates: start: 20170920

REACTIONS (3)
  - Erythema [Not Recovered/Not Resolved]
  - Sedation [Unknown]
  - Pruritus [Not Recovered/Not Resolved]

NARRATIVE: CASE EVENT DATE: 20170920
